FAERS Safety Report 10047784 (Version 1)
Quarter: 2014Q1

REPORT INFORMATION
  Report Type: Report from Study
  Country: US (occurrence: US)
  Receive Date: 20140331
  Receipt Date: 20140331
  Transmission Date: 20141002
  Serious: Yes (Other)
  Sender: FDA-Public Use
  Company Number: US-ALEXION-A200800717

PATIENT
  Sex: Male

DRUGS (2)
  1. SOLIRIS [Suspect]
     Indication: PAROXYSMAL NOCTURNAL HAEMOGLOBINURIA
     Dosage: UNK
     Route: 042
  2. SOLIRIS [Suspect]
     Dosage: UNK, EVERY 12 DAYS
     Route: 042

REACTIONS (4)
  - Haemoglobin decreased [Not Recovered/Not Resolved]
  - Haemoglobinuria [Recovered/Resolved]
  - Fatigue [Recovering/Resolving]
  - Blood lactate dehydrogenase decreased [Unknown]
